FAERS Safety Report 17730956 (Version 1)
Quarter: 2020Q2

REPORT INFORMATION
  Report Type: Report from Study
  Country: US (occurrence: US)
  Receive Date: 20200430
  Receipt Date: 20200430
  Transmission Date: 20200714
  Serious: Yes (Death)
  Sender: FDA-Public Use
  Company Number: US-ASTRAZENECA-2020SE56964

PATIENT
  Age: 24598 Day
  Sex: Male

DRUGS (9)
  1. PREDNISONE. [Concomitant]
     Active Substance: PREDNISONE
  2. GABAPENTIN. [Concomitant]
     Active Substance: GABAPENTIN
  3. PROTONIX [Concomitant]
     Active Substance: PANTOPRAZOLE SODIUM
  4. VENTOLIN HFA [Concomitant]
     Active Substance: ALBUTEROL SULFATE
  5. VITAMIN D-400 [Concomitant]
  6. FISH OIL [Concomitant]
     Active Substance: FISH OIL
  7. COZAAR [Concomitant]
     Active Substance: LOSARTAN POTASSIUM
  8. DIAZEPAM. [Concomitant]
     Active Substance: DIAZEPAM
  9. FASENRA [Suspect]
     Active Substance: BENRALIZUMAB
     Indication: ASTHMA
     Dosage: 30MG/ML EVERY EIGHT WEEKS
     Route: 058
     Dates: start: 20191105

REACTIONS (1)
  - Death [Fatal]

NARRATIVE: CASE EVENT DATE: 20200402
